FAERS Safety Report 8987046 (Version 2)
Quarter: 2013Q4

REPORT INFORMATION
  Report Type: Spontaneous
  Country: ES (occurrence: ES)
  Receive Date: 20121227
  Receipt Date: 20131127
  Transmission Date: 20140711
  Serious: Yes (Other)
  Sender: FDA-Public Use
  Company Number: ES-009507513-1212ESP009308

PATIENT
  Age: 10 Year
  Sex: Male
  Weight: 35 kg

DRUGS (2)
  1. SINGULAIR 5 MG COMPRIMIDOS MASTICABLES [Suspect]
     Indication: ASTHMA
     Dosage: 5 MG, ONCE
     Route: 048
     Dates: start: 20120419, end: 20120602
  2. AZOMYR [Suspect]
     Indication: SEASONAL ALLERGY
     Dosage: 5 MG, ONCE
     Route: 048
     Dates: start: 20120419, end: 20120602

REACTIONS (2)
  - Eosinophilic oesophagitis [Recovered/Resolved]
  - Eosinophilia [Recovered/Resolved]
